FAERS Safety Report 23892003 (Version 1)
Quarter: 2024Q2

REPORT INFORMATION
  Report Type: Other
  Country: US (occurrence: None)
  Receive Date: 20240524
  Receipt Date: 20240524
  Transmission Date: 20240717
  Serious: Yes (Other)
  Sender: FDA-Public Use
  Company Number: US-ROCHE-3435988

PATIENT
  Age: 37 Year
  Sex: Female

DRUGS (4)
  1. TOCILIZUMAB [Suspect]
     Active Substance: TOCILIZUMAB
     Indication: Haemophagocytic lymphohistiocytosis
     Route: 065
  2. TOCILIZUMAB [Suspect]
     Active Substance: TOCILIZUMAB
     Indication: Still^s disease
  3. DEXAMETHASONE [Concomitant]
     Active Substance: DEXAMETHASONE
  4. ANAKINRA [Concomitant]
     Active Substance: ANAKINRA

REACTIONS (1)
  - Drug-induced liver injury [Unknown]
